FAERS Safety Report 21659086 (Version 2)
Quarter: 2022Q4

REPORT INFORMATION
  Report Type: Spontaneous
  Country: US (occurrence: US)
  Receive Date: 20221129
  Receipt Date: 20221219
  Transmission Date: 20230113
  Serious: Yes (Other)
  Sender: FDA-Public Use
  Company Number: US-Calliditas-2022CAL00498

PATIENT
  Age: 68 Year
  Sex: Male

DRUGS (3)
  1. TARPEYO [Suspect]
     Active Substance: BUDESONIDE
     Indication: Haematuria
     Dosage: 16MG (4MG CAPSULES) ONCE DAILY
     Route: 048
     Dates: start: 20220425
  2. CELLCEPT [Suspect]
     Active Substance: MYCOPHENOLATE MOFETIL
     Indication: Product used for unknown indication
     Dosage: DOSE NOT PROVIDED
  3. NORVASC [Suspect]
     Active Substance: AMLODIPINE BESYLATE

REACTIONS (8)
  - Blood pressure increased [Not Recovered/Not Resolved]
  - Joint swelling [Unknown]
  - Weight decreased [Recovered/Resolved]
  - End stage renal disease [Unknown]
  - Dialysis [Unknown]
  - Renal impairment [Unknown]
  - Blood glucose increased [Unknown]
  - Rash [Unknown]
